FAERS Safety Report 19898152 (Version 1)
Quarter: 2021Q3

REPORT INFORMATION
  Report Type: Spontaneous
  Country: US (occurrence: US)
  Receive Date: 20210930
  Receipt Date: 20210930
  Transmission Date: 20211014
  Serious: No
  Sender: FDA-Public Use
  Company Number: US-BAUSCH-BL-2021-032133

PATIENT
  Sex: Male
  Weight: 81.72 kg

DRUGS (1)
  1. SECONAL SODIUM [Suspect]
     Active Substance: SECOBARBITAL SODIUM
     Indication: SLEEP DISORDER
     Dosage: 2 CAPSULE ORALLY EVERY NIGHT FROM ABOUT 4?5 YEARS AGO
     Route: 048

REACTIONS (4)
  - Quality of life decreased [Unknown]
  - Product availability issue [Unknown]
  - Insomnia [Unknown]
  - Therapy interrupted [Not Recovered/Not Resolved]
